FAERS Safety Report 19410804 (Version 1)
Quarter: 2021Q2

REPORT INFORMATION
  Report Type: Spontaneous
  Country: HR (occurrence: HR)
  Receive Date: 20210614
  Receipt Date: 20210614
  Transmission Date: 20210717
  Serious: Yes (Hospitalization, Other)
  Sender: FDA-Public Use
  Company Number: HR-MACLEODS PHARMACEUTICALS US LTD-MAC2021031512

PATIENT

DRUGS (2)
  1. ACYCLOVIR. [Suspect]
     Active Substance: ACYCLOVIR
     Dosage: UNK
     Route: 051
  2. ACYCLOVIR. [Suspect]
     Active Substance: ACYCLOVIR
     Indication: HERPES ZOSTER
     Dosage: 800 MILLIGRAM, BID
     Route: 048

REACTIONS (6)
  - Transient ischaemic attack [Recovered/Resolved]
  - Mental status changes [Recovered/Resolved]
  - Central nervous system infection [Recovered/Resolved]
  - Disorientation [Recovered/Resolved]
  - Pleocytosis [Recovered/Resolved]
  - Amnesia [Recovered/Resolved]
